FAERS Safety Report 5393729-2 (Version None)
Quarter: 2007Q3

REPORT INFORMATION
  Report Type: 
  Country: None (occurrence: None)
  Receive Date: 20070723
  Receipt Date: 20070711
  Transmission Date: 20080115
  Serious: Yes (Hospitalization)
  Sender: FDA-Public Use
  Company Number: GB-AMGEN-US234508

PATIENT
  Age: 47 Year
  Sex: Male
  Weight: 70 kg

DRUGS (12)
  1. ENBREL [Suspect]
     Indication: RHEUMATOID ARTHRITIS
     Route: 058
     Dates: start: 20060201
  2. AMITRIPTYLINE HCL [Concomitant]
     Indication: RHEUMATOID ARTHRITIS
     Route: 048
     Dates: start: 20030101
  3. ASPIRIN [Concomitant]
     Indication: ANGINA PECTORIS
  4. BENDROFLUMETHIAZIDE [Concomitant]
  5. SIMVASTATIN [Concomitant]
     Indication: BLOOD CHOLESTEROL INCREASED
     Route: 048
     Dates: start: 20020101
  6. GOLD [Concomitant]
     Indication: RHEUMATOID ARTHRITIS
     Route: 065
     Dates: start: 20010101
  7. ISOSORBIDE DINITRATE [Concomitant]
     Indication: ANGINA PECTORIS
     Route: 065
  8. SALBUTAMOL [Concomitant]
     Dosage: UNKNOWN
  9. SENNA [Concomitant]
     Indication: CONSTIPATION
     Route: 048
  10. SERETIDE [Concomitant]
     Dosage: UNKNOWN
     Route: 055
  11. DILTIAZEM [Concomitant]
     Indication: HYPERTENSION
     Route: 048
  12. FUROSEMIDE [Concomitant]
     Route: 065

REACTIONS (4)
  - BACK PAIN [None]
  - MUSCLE SPASMS [None]
  - MUSCULOSKELETAL STIFFNESS [None]
  - PAIN [None]
